FAERS Safety Report 19017419 (Version 1)
Quarter: 2021Q1

REPORT INFORMATION
  Report Type: Spontaneous
  Country: IN (occurrence: IN)
  Receive Date: 20210317
  Receipt Date: 20210317
  Transmission Date: 20210420
  Serious: No
  Sender: FDA-Public Use
  Company Number: IN-LUPIN PHARMACEUTICALS INC.-2021-03292

PATIENT
  Age: 24 Year
  Sex: Male

DRUGS (1)
  1. BETAMETHASONE. [Suspect]
     Active Substance: BETAMETHASONE
     Indication: PRURITUS
     Dosage: UNK (CREAM)
     Route: 061

REACTIONS (2)
  - Tinea faciei [Unknown]
  - Intentional product misuse [Unknown]
